FAERS Safety Report 10272404 (Version 1)
Quarter: 2014Q1

REPORT INFORMATION
  Report Type: Spontaneous
  Country: US (occurrence: None)
  Receive Date: 20140306
  Receipt Date: 20140306
  Transmission Date: 20141002
  Serious: Yes (Other)
  Sender: FDA-Public Use
  Company Number: 163-21880-13043400

PATIENT
  Age: 48 Year
  Sex: Female
  Weight: 58.1 kg

DRUGS (2)
  1. REVLIMID (LENALIDOMIDE) (10 MILLIGRAM, CAPSULES) [Suspect]
     Indication: MYELOFIBROSIS
     Dosage: 10 MG, 21 IN 28 D, PO
     Route: 048
     Dates: start: 201303
  2. FERROUS SULFATE [Concomitant]

REACTIONS (5)
  - Pruritus [None]
  - Skin irritation [None]
  - Yellow skin [None]
  - Insomnia [None]
  - Hyperhidrosis [None]
